FAERS Safety Report 9156892 (Version 2)
Quarter: 2013Q1

REPORT INFORMATION
  Report Type: Spontaneous
  Country: US (occurrence: None)
  Receive Date: 20130212
  Receipt Date: 20130219
  Transmission Date: 20140127
  Serious: Yes (Hospitalization)
  Sender: FDA-Public Use
  Company Number: DKLU1088747

PATIENT
  Age: 2 Year
  Sex: Male

DRUGS (2)
  1. SABRIL [Suspect]
     Indication: INFANTILE SPASMS
     Dosage: 500 MG MILLIGRAM (S), AM, ORAL
     Route: 048
     Dates: start: 20120323
  2. SABRIL [Suspect]
     Indication: TUBEROUS SCLEROSIS
     Dosage: 500 MG MILLIGRAM (S), AM, ORAL
     Route: 048
     Dates: start: 20120323

REACTIONS (2)
  - Respiratory disorder [None]
  - Respiratory distress [None]
